FAERS Safety Report 8110717-3 (Version None)
Quarter: 2012Q1

REPORT INFORMATION
  Report Type: 
  Country: None (occurrence: None)
  Receive Date: 20120203
  Receipt Date: 20120130
  Transmission Date: 20120608
  Serious: No
  Sender: FDA-Public Use
  Company Number: US-PFIZER INC-2012026097

PATIENT
  Sex: Female

DRUGS (2)
  1. FLECTOR [Suspect]
     Indication: LIGAMENT RUPTURE
  2. FLECTOR [Suspect]
     Indication: SURGERY
     Dosage: UNK

REACTIONS (5)
  - INSOMNIA [None]
  - IRRITABILITY [None]
  - PAIN [None]
  - DYSSTASIA [None]
  - PRODUCT QUALITY ISSUE [None]
